FAERS Safety Report 9221853 (Version 2)
Quarter: 2013Q2

REPORT INFORMATION
  Report Type: Spontaneous
  Country: US (occurrence: US)
  Receive Date: 20130410
  Receipt Date: 20130617
  Transmission Date: 20140414
  Serious: Yes (Other)
  Sender: FDA-Public Use
  Company Number: US-BAYER-2013-044425

PATIENT
  Age: 17 Year
  Sex: Female
  Weight: 73.92 kg

DRUGS (5)
  1. MIRENA [Suspect]
     Indication: CONTRACEPTION
     Dosage: 20 MCG/24HR, CONT
     Route: 015
     Dates: start: 20130215, end: 20130405
  2. ADIPEX-P [Concomitant]
  3. ALBUTEROL [Concomitant]
     Indication: ASTHMA
     Dosage: QD, PRN
  4. CELEXA [Concomitant]
     Indication: DEPRESSION
  5. FERROUS SULFATE [Concomitant]
     Indication: ANAEMIA OF PREGNANCY
     Dosage: 325 MG, QD
     Dates: start: 20130131, end: 20130430

REACTIONS (4)
  - Device dislocation [Recovering/Resolving]
  - Pain [Recovering/Resolving]
  - Genital haemorrhage [None]
  - Abdominal pain [Recovering/Resolving]
